FAERS Safety Report 21783010 (Version 1)
Quarter: 2022Q4

REPORT INFORMATION
  Report Type: Spontaneous
  Country: IN (occurrence: IN)
  Receive Date: 20221227
  Receipt Date: 20221227
  Transmission Date: 20230112
  Serious: Yes (Death, Hospitalization)
  Sender: FDA-Public Use
  Company Number: IN-MYLANLABS-2022M1144421

PATIENT
  Age: 50 Year
  Sex: Female

DRUGS (1)
  1. METHOTREXATE [Suspect]
     Active Substance: METHOTREXATE
     Indication: Rheumatoid arthritis
     Dosage: 15 MILLIGRAM, QD
     Route: 065

REACTIONS (10)
  - Pancytopenia [Fatal]
  - Rectal haemorrhage [Fatal]
  - Treatment noncompliance [Fatal]
  - Intentional product misuse [Fatal]
  - Toxicity to various agents [Fatal]
  - Hypokalaemia [Unknown]
  - Bradycardia [Unknown]
  - Acute kidney injury [Unknown]
  - SJS-TEN overlap [Unknown]
  - Hypotension [Unknown]
